FAERS Safety Report 25285343 (Version 1)
Quarter: 2025Q2

REPORT INFORMATION
  Report Type: Spontaneous
  Country: US (occurrence: US)
  Receive Date: 20250509
  Receipt Date: 20250509
  Transmission Date: 20250716
  Serious: Yes (Other)
  Sender: COLLEGIUM PHARMACEUTICAL
  Company Number: US-COLLEGIUM PHARMACEUTICAL, INC.-20240900691

PATIENT

DRUGS (2)
  1. XTAMPZA ER [Suspect]
     Active Substance: OXYCODONE
     Indication: Pain
     Route: 065
     Dates: start: 2022
  2. XTAMPZA ER [Suspect]
     Active Substance: OXYCODONE
     Route: 065
     Dates: start: 202407

REACTIONS (5)
  - Drug withdrawal syndrome [Unknown]
  - Discomfort [Unknown]
  - Negative thoughts [Unknown]
  - Therapeutic response decreased [Unknown]
  - Off label use [Recovered/Resolved]

NARRATIVE: CASE EVENT DATE: 20220101
